FAERS Safety Report 8613088-9 (Version None)
Quarter: 2012Q3

REPORT INFORMATION
  Report Type: 
  Country: None (occurrence: None)
  Receive Date: 20120822
  Receipt Date: 20120726
  Transmission Date: 20120928
  Serious: No
  Sender: FDA-Public Use
  Company Number: GB-009507513-1207GBR006835

PATIENT

DRUGS (6)
  1. CLOZARIL [Suspect]
     Indication: SCHIZOPHRENIA
     Dosage: UNK
     Route: 048
     Dates: start: 19941205
  2. CITALOPRAM HYDROBROMIDE [Suspect]
     Indication: DEPRESSION
     Dosage: 40 MG, UNK
     Route: 048
  3. MIRTAZAPINE [Suspect]
     Indication: DEPRESSION
     Dosage: 30 MG, UNK
     Route: 048
  4. ARIPIPRAZOLE [Suspect]
     Indication: SCHIZOPHRENIA
     Dosage: 10 MG, UNK
     Route: 048
  5. CLOZARIL [Suspect]
     Dosage: UNK
     Route: 048
     Dates: start: 20010701
  6. CLOZARIL [Suspect]
     Dosage: 450 MG, UNK
     Route: 048

REACTIONS (1)
  - NO ADVERSE EVENT [None]
